FAERS Safety Report 24862109 (Version 2)
Quarter: 2025Q1

REPORT INFORMATION
  Report Type: Spontaneous
  Country: JP (occurrence: JP)
  Receive Date: 20250120
  Receipt Date: 20250128
  Transmission Date: 20250408
  Serious: Yes (Hospitalization)
  Sender: GALDERMA
  Company Number: JP-GALDERMA-JP2024018806

PATIENT

DRUGS (2)
  1. NEMOLIZUMAB [Suspect]
     Active Substance: NEMOLIZUMAB
     Indication: Dermatitis atopic
     Route: 058
     Dates: start: 20241112, end: 20241112
  2. NEMOLIZUMAB [Suspect]
     Active Substance: NEMOLIZUMAB
     Route: 058
     Dates: start: 202412, end: 202412

REACTIONS (1)
  - Infectious mononucleosis [Recovered/Resolved]

NARRATIVE: CASE EVENT DATE: 20241201
